FAERS Safety Report 12429827 (Version 1)
Quarter: 2016Q2

REPORT INFORMATION
  Report Type: Spontaneous
  Country: FR (occurrence: FR)
  Receive Date: 20160602
  Receipt Date: 20160602
  Transmission Date: 20160815
  Serious: Yes (Hospitalization)
  Sender: FDA-Public Use
  Company Number: FR-SA-2016SA101894

PATIENT
  Age: 53 Year
  Sex: Male

DRUGS (16)
  1. PANTOPRAZOLE [Concomitant]
     Active Substance: PANTOPRAZOLE SODIUM
     Dates: start: 20160324
  2. LEVEMIR [Concomitant]
     Active Substance: INSULIN DETEMIR
     Dosage: 100U/ML X10/DAY
  3. METFORMIN [Concomitant]
     Active Substance: METFORMIN HYDROCHLORIDE
     Route: 048
     Dates: start: 20160418
  4. TENORMIN [Concomitant]
     Active Substance: ATENOLOL
     Dosage: COATED DIVISIBLE TABLET
     Route: 048
  5. VALIUM [Concomitant]
     Active Substance: DIAZEPAM
  6. BECILAN [Concomitant]
     Active Substance: PYRIDOXINE
  7. NICOBION [Concomitant]
     Active Substance: NIACINAMIDE
  8. JANUVIA [Suspect]
     Active Substance: SITAGLIPTIN PHOSPHATE
     Indication: TYPE 2 DIABETES MELLITUS
     Route: 048
     Dates: start: 20160411, end: 20160413
  9. METFORMIN [Concomitant]
     Active Substance: METFORMIN HYDROCHLORIDE
     Route: 048
     Dates: start: 20160414, end: 20160417
  10. BEVITINE [Concomitant]
     Active Substance: THIAMINE
  11. PLAVIX [Concomitant]
     Active Substance: CLOPIDOGREL BISULFATE
  12. FLEXPEN [Concomitant]
     Active Substance: UNSPECIFIED INGREDIENT
  13. APROVEL [Suspect]
     Active Substance: IRBESARTAN
     Indication: HYPERTENSION
     Route: 048
     Dates: start: 20160324, end: 20160413
  14. APROVEL [Suspect]
     Active Substance: IRBESARTAN
     Indication: HYPERTENSION
     Route: 065
     Dates: start: 20160418
  15. METFORMIN [Concomitant]
     Active Substance: METFORMIN HYDROCHLORIDE
     Route: 048
     Dates: start: 20160401, end: 20160413
  16. NORSET [Concomitant]
     Active Substance: MIRTAZAPINE
     Dates: end: 20160401

REACTIONS (2)
  - Blood creatinine increased [Recovering/Resolving]
  - Lipase increased [Recovering/Resolving]

NARRATIVE: CASE EVENT DATE: 20160413
